FAERS Safety Report 10473314 (Version 1)
Quarter: 2014Q3

REPORT INFORMATION
  Report Type: Spontaneous
  Country: US (occurrence: US)
  Receive Date: 20140924
  Receipt Date: 20140924
  Transmission Date: 20150326
  Serious: No
  Sender: FDA-Public Use
  Company Number: US-ENDO PHARMACEUTICALS INC.-ISOS20140003

PATIENT
  Sex: Female

DRUGS (1)
  1. ISOSORBIDE MONONITRATE ER TABLETS [Suspect]
     Active Substance: ISOSORBIDE MONONITRATE
     Indication: PRODUCT USED FOR UNKNOWN INDICATION
     Dosage: UNKNOWN
     Route: 048

REACTIONS (1)
  - Drug ineffective [Unknown]
